FAERS Safety Report 24369562 (Version 1)
Quarter: 2024Q3

REPORT INFORMATION
  Report Type: Report from Study
  Country: US (occurrence: US)
  Receive Date: 20240927
  Receipt Date: 20240927
  Transmission Date: 20241017
  Serious: No
  Sender: ROCHE
  Company Number: US-ROCHE-3486447

PATIENT
  Age: 76 Year
  Sex: Female

DRUGS (4)
  1. LUCENTIS [Suspect]
     Active Substance: RANIBIZUMAB
     Indication: Retinal vein occlusion
     Dosage: UNKNOWN
     Route: 065
  2. LUCENTIS [Suspect]
     Active Substance: RANIBIZUMAB
     Indication: Macular oedema
  3. VABYSMO [Suspect]
     Active Substance: FARICIMAB-SVOA
     Indication: Retinal vein occlusion
     Route: 065
     Dates: start: 20240105
  4. VABYSMO [Suspect]
     Active Substance: FARICIMAB-SVOA
     Indication: Macular oedema

REACTIONS (2)
  - Drug ineffective [Unknown]
  - No adverse event [Unknown]
